FAERS Safety Report 6942482-7 (Version None)
Quarter: 2010Q3

REPORT INFORMATION
  Report Type: 
  Country: None (occurrence: None)
  Receive Date: 20100826
  Receipt Date: 20100818
  Transmission Date: 20110219
  Serious: Yes (Other)
  Sender: FDA-Public Use
  Company Number: US-B.I. PHARMACEUTICALS,INC./RIDGEFIELD-2010-BP-09483BP

PATIENT

DRUGS (2)
  1. TWYNSTA [Suspect]
  2. RAMIPRIL [Concomitant]

REACTIONS (1)
  - HYPERTENSION [None]
